FAERS Safety Report 9307728 (Version 1)
Quarter: 2013Q2

REPORT INFORMATION
  Report Type: Spontaneous
  Country: US (occurrence: US)
  Receive Date: 20130524
  Receipt Date: 20130524
  Transmission Date: 20140414
  Serious: Yes (Hospitalization)
  Sender: FDA-Public Use
  Company Number: US-PFIZER INC-2013157276

PATIENT
  Age: 60 Year
  Sex: Female

DRUGS (10)
  1. QUINAPRIL [Suspect]
     Dosage: UNK
  2. BUMETANIDE [Suspect]
     Dosage: UNK
  3. LETAIRIS [Suspect]
     Indication: PULMONARY ARTERIAL HYPERTENSION
     Dosage: 10 MG, 1X/DAY
     Dates: start: 20081231
  4. LOVASTATIN [Suspect]
     Dosage: UNK
  5. ASPIRIN [Suspect]
     Dosage: UNK
  6. PIOGLITAZONE [Concomitant]
     Dosage: UNK
  7. OXYBUTYNIN [Concomitant]
     Dosage: UNK
  8. CYANOCOBALAMIN [Concomitant]
     Dosage: UNK
  9. ALLOPURINOL [Concomitant]
     Dosage: UNK
  10. SERTRALINE [Concomitant]
     Dosage: UNK

REACTIONS (2)
  - Oedema [Unknown]
  - Dyspnoea [Unknown]
